FAERS Safety Report 9123196 (Version 1)
Quarter: 2013Q1

REPORT INFORMATION
  Report Type: Spontaneous
  Country: US (occurrence: US)
  Receive Date: 20130115
  Receipt Date: 20130115
  Transmission Date: 20140127
  Serious: Yes (Other)
  Sender: FDA-Public Use
  Company Number: US-PFIZER INC-2013012172

PATIENT
  Age: 58 Year
  Sex: Female
  Weight: 90.7 kg

DRUGS (4)
  1. ESTRING [Suspect]
     Indication: ATROPHIC VULVOVAGINITIS
     Dosage: UNK, EVERY 3 MONTHS
     Route: 067
     Dates: start: 200501, end: 201209
  2. ESTRING [Suspect]
     Indication: URINARY INCONTINENCE
  3. OMEPRAZOLE [Concomitant]
     Indication: DYSPEPSIA
     Dosage: 20 MG, DAILY
  4. METFORMIN [Concomitant]
     Indication: DIABETES MELLITUS
     Dosage: 500 MG, DAILY
     Dates: start: 20121220

REACTIONS (3)
  - Vaginal haemorrhage [Recovered/Resolved]
  - Endometrial hypertrophy [Unknown]
  - Muscle spasms [Not Recovered/Not Resolved]
